FAERS Safety Report 24971754 (Version 1)
Quarter: 2025Q1

REPORT INFORMATION
  Report Type: Spontaneous
  Country: DE (occurrence: DE)
  Receive Date: 20250214
  Receipt Date: 20250214
  Transmission Date: 20250408
  Serious: Yes (Other)
  Sender: PFIZER
  Company Number: DE-ABBVIE-6111837

PATIENT
  Age: 22 Year

DRUGS (3)
  1. ADALIMUMAB [Suspect]
     Active Substance: ADALIMUMAB
     Indication: Crohn^s disease
     Route: 058
     Dates: start: 201605
  2. UPADACITINIB [Suspect]
     Active Substance: UPADACITINIB
     Indication: Colitis ulcerative
     Route: 048
     Dates: start: 202406
  3. SKYRIZI [Suspect]
     Active Substance: RISANKIZUMAB-RZAA
     Indication: Crohn^s disease
     Route: 058
     Dates: start: 202411

REACTIONS (8)
  - Colitis [Unknown]
  - Haematochezia [Unknown]
  - Colitis [Unknown]
  - Anal fistula [Unknown]
  - Frequent bowel movements [Unknown]
  - Therapeutic product effect incomplete [Unknown]
  - Gastrointestinal infection [Unknown]
  - Erythema nodosum [Unknown]

NARRATIVE: CASE EVENT DATE: 20180301
